FAERS Safety Report 4976680-9 (Version None)
Quarter: 2006Q2

REPORT INFORMATION
  Report Type: 
  Country: None (occurrence: None)
  Receive Date: 20060419
  Receipt Date: 20060323
  Transmission Date: 20061013
  Serious: Yes (Death, Hospitalization)
  Sender: FDA-Public Use
  Company Number: US-MERCK-0603USA03963

PATIENT
  Age: 86 Year
  Sex: Female
  Weight: 64 kg

DRUGS (18)
  1. VIOXX [Suspect]
     Indication: ARTHRITIS
     Route: 048
     Dates: start: 20000308, end: 20030306
  2. ASPIRIN [Concomitant]
     Route: 048
  3. TYLENOL (CAPLET) [Concomitant]
     Route: 065
  4. NORVASC [Concomitant]
     Route: 048
     Dates: end: 20030306
  5. CELEXA [Concomitant]
     Route: 048
  6. CATAPRES [Concomitant]
     Route: 065
  7. NEURONTIN [Concomitant]
     Route: 065
  8. RISPERDAL [Concomitant]
     Route: 065
  9. SYNTHROID [Concomitant]
     Route: 065
  10. PREMARIN [Concomitant]
     Route: 065
  11. SINGULAIR [Concomitant]
     Route: 048
  12. MECLIZINE [Concomitant]
     Route: 065
  13. METOPROLOL [Concomitant]
     Route: 065
  14. REMINYL [Concomitant]
     Route: 065
  15. AZMACORT [Concomitant]
     Route: 055
  16. MILK OF MAGNESIA TAB [Concomitant]
     Route: 065
  17. ROBITUSSIN [Concomitant]
     Route: 048
  18. LEVAQUIN [Concomitant]
     Route: 048

REACTIONS (12)
  - ACUTE RESPIRATORY FAILURE [None]
  - ARTERIOSCLEROSIS CORONARY ARTERY [None]
  - ASTHMA [None]
  - CHEST PAIN [None]
  - CHRONIC OBSTRUCTIVE PULMONARY DISEASE [None]
  - DYSPHAGIA [None]
  - HYPOXIA [None]
  - HYPOXIC ENCEPHALOPATHY [None]
  - LACUNAR INFARCTION [None]
  - PNEUMONIA [None]
  - RENAL FAILURE [None]
  - THROMBOEMBOLIC STROKE [None]
